FAERS Safety Report 18550911 (Version 1)
Quarter: 2020Q4

REPORT INFORMATION
  Report Type: Spontaneous
  Country: US (occurrence: US)
  Receive Date: 20201126
  Receipt Date: 20201126
  Transmission Date: 20210114
  Serious: No
  Sender: FDA-Public Use
  Company Number: US-UNITED THERAPEUTICS-UNT-2020-018390

PATIENT
  Age: 57 Year
  Sex: Female
  Weight: 62.59 kg

DRUGS (4)
  1. REMODULIN [Suspect]
     Active Substance: TREPROSTINIL
     Dosage: 0.072 ?G/KG, CONTINUING (AT INFUSION RATE OF 53 ML/24 HOURS)
     Route: 041
     Dates: start: 20201114
  2. REMODULIN [Suspect]
     Active Substance: TREPROSTINIL
     Indication: PULMONARY ARTERIAL HYPERTENSION
     Dosage: UNK, CONTINUING
     Route: 041
     Dates: start: 20190801
  3. REMODULIN [Suspect]
     Active Substance: TREPROSTINIL
     Dosage: 0.053 ?G/KG, CONTINUING (AT INFUSION RATE OF 39 ML/24 HOURS)
     Route: 041
     Dates: start: 202011
  4. TADALAFIL. [Concomitant]
     Active Substance: TADALAFIL
     Indication: PRODUCT USED FOR UNKNOWN INDICATION
     Route: 065

REACTIONS (5)
  - Wrong dose [Unknown]
  - Incorrect drug administration rate [Unknown]
  - Headache [Unknown]
  - Pain in jaw [Unknown]
  - Device programming error [Unknown]

NARRATIVE: CASE EVENT DATE: 202011
